FAERS Safety Report 5866836-5 (Version None)
Quarter: 2008Q3

REPORT INFORMATION
  Report Type: 
  Country: None (occurrence: None)
  Receive Date: 20080902
  Receipt Date: 20080825
  Transmission Date: 20090109
  Serious: Yes (Other)
  Sender: FDA-Public Use
  Company Number: JP-ABBOTT-06P-087-0347793-00

PATIENT
  Sex: Male

DRUGS (20)
  1. KALETRA [Suspect]
     Indication: HIV INFECTION
     Route: 048
     Dates: start: 20050415, end: 20061019
  2. LAMIVUDINE [Suspect]
     Indication: HIV INFECTION
     Route: 048
     Dates: start: 20050415, end: 20061019
  3. STAVUDINE [Suspect]
     Indication: HIV INFECTION
     Route: 048
     Dates: start: 20050405, end: 20051204
  4. ATAZANAVIR SULFATE [Suspect]
     Indication: HIV INFECTION
     Dates: start: 20061020
  5. ABACAVIR SULFATE [Suspect]
     Indication: HIV INFECTION
     Route: 048
     Dates: start: 20051205, end: 20061019
  6. ABACAVIR SULFATE/LAMIVUDINE [Suspect]
     Indication: HIV INFECTION
     Route: 048
     Dates: start: 20061020
  7. NORVIR [Suspect]
     Indication: HIV INFECTION
     Route: 048
     Dates: start: 20061020
  8. BACTRIM [Concomitant]
     Indication: ANTIFUNGAL PROPHYLAXIS
     Route: 048
     Dates: start: 20050302, end: 20050428
  9. ATOVAQUONE [Concomitant]
     Indication: ANTIFUNGAL PROPHYLAXIS
     Route: 048
     Dates: start: 20050509, end: 20071116
  10. ATOVAQUONE [Concomitant]
     Indication: CEREBRAL TOXOPLASMOSIS
  11. ATOVAQUONE [Concomitant]
     Indication: PROPHYLAXIS
  12. OMEPRAZOLE [Concomitant]
     Indication: PROPHYLAXIS AGAINST GASTROINTESTINAL ULCER
     Route: 048
     Dates: start: 20050325
  13. OMEPRAZOLE [Concomitant]
     Indication: PROPHYLAXIS
     Route: 048
     Dates: start: 20050525, end: 20061019
  14. BROTIZOLAM [Concomitant]
     Indication: INSOMNIA
     Route: 048
     Dates: start: 20050325, end: 20060720
  15. VALPROATE SODIUM [Concomitant]
     Indication: CONVULSION PROPHYLAXIS
     Route: 048
     Dates: start: 20050525
  16. GLIMEPIRIDE [Concomitant]
     Indication: DIABETES MELLITUS
     Route: 048
     Dates: start: 20040101, end: 20050818
  17. GLIMEPIRIDE [Concomitant]
     Route: 048
     Dates: start: 20050819, end: 20060119
  18. GLIMEPIRIDE [Concomitant]
     Route: 048
     Dates: start: 20060120
  19. TELMISARTAN [Concomitant]
     Indication: HYPERTENSION
     Route: 048
     Dates: start: 20071019, end: 20071220
  20. TELMISARTAN [Concomitant]
     Route: 048
     Dates: start: 20071221

REACTIONS (7)
  - BLOOD ALKALINE PHOSPHATASE INCREASED [None]
  - BLOOD AMYLASE INCREASED [None]
  - BLOOD BILIRUBIN INCREASED [None]
  - CEREBRAL TOXOPLASMOSIS [None]
  - HYPERLIPIDAEMIA [None]
  - HYPERTENSION [None]
  - IMMUNE RECONSTITUTION SYNDROME [None]
